FAERS Safety Report 14249908 (Version 1)
Quarter: 2017Q4

REPORT INFORMATION
  Report Type: Spontaneous
  Country: AU (occurrence: AU)
  Receive Date: 20171205
  Receipt Date: 20171205
  Transmission Date: 20180321
  Serious: Yes (Disabling, Other)
  Sender: FDA-Public Use
  Company Number: None

PATIENT
  Age: 28 Year
  Sex: Female
  Weight: 56 kg

DRUGS (3)
  1. ELOCON [Suspect]
     Active Substance: MOMETASONE FUROATE
     Indication: DERMATITIS
     Route: 061
     Dates: start: 20040101, end: 20161106
  2. ANTI-HISTAMINES [Concomitant]
  3. ELOCON [Suspect]
     Active Substance: MOMETASONE FUROATE
     Indication: SKIN DISORDER
     Route: 061
     Dates: start: 20040101, end: 20161106

REACTIONS (2)
  - Withdrawal syndrome [None]
  - Skin reaction [None]

NARRATIVE: CASE EVENT DATE: 20161106
